FAERS Safety Report 19323346 (Version 1)
Quarter: 2021Q2

REPORT INFORMATION
  Report Type: Spontaneous
  Country: FR (occurrence: FR)
  Receive Date: 20210528
  Receipt Date: 20210528
  Transmission Date: 20210717
  Serious: Yes (Hospitalization, Other)
  Sender: FDA-Public Use
  Company Number: FR-BAUSCH-BL-2021-017814

PATIENT
  Age: 6 Year
  Sex: Male
  Weight: 23 kg

DRUGS (2)
  1. ACICLOVIR [Suspect]
     Active Substance: ACYCLOVIR
     Indication: VARICELLA ZOSTER VIRUS INFECTION
     Route: 042
     Dates: start: 20210416
  2. ACICLOVIR [Suspect]
     Active Substance: ACYCLOVIR
     Dosage: DOSE REDUCED
     Route: 042

REACTIONS (2)
  - Condition aggravated [Recovering/Resolving]
  - Acute kidney injury [Recovering/Resolving]

NARRATIVE: CASE EVENT DATE: 20210417
